FAERS Safety Report 7082830-3 (Version None)
Quarter: 2010Q4

REPORT INFORMATION
  Report Type: 
  Country: None (occurrence: None)
  Receive Date: 20101104
  Receipt Date: 20071008
  Transmission Date: 20110411
  Serious: Yes (Other)
  Sender: FDA-Public Use
  Company Number: PHHY2007US03646

PATIENT
  Sex: Female

DRUGS (1)
  1. EXJADE [Suspect]
     Dosage: 500 MG, UNK
     Route: 048

REACTIONS (9)
  - ABDOMINAL PAIN [None]
  - BLEPHAROSPASM [None]
  - BLOOD URINE PRESENT [None]
  - DIARRHOEA [None]
  - EPISTAXIS [None]
  - IMPAIRED DRIVING ABILITY [None]
  - NAUSEA [None]
  - VISUAL IMPAIRMENT [None]
  - VOMITING [None]
